FAERS Safety Report 4620319-9 (Version None)
Quarter: 2005Q1

REPORT INFORMATION
  Report Type: 
  Country: None (occurrence: None)
  Receive Date: 20050324
  Receipt Date: 20050316
  Transmission Date: 20050727
  Serious: Yes (Hospitalization)
  Sender: FDA-Public Use
  Company Number: 163-20785-05010476

PATIENT
  Age: 51 Year
  Sex: Male

DRUGS (7)
  1. THALOMID [Suspect]
     Indication: COMPLEX REGIONAL PAIN SYNDROME
     Dosage: SEE IMAGE
     Route: 048
     Dates: start: 20041222, end: 20041228
  2. THALOMID [Suspect]
     Indication: COMPLEX REGIONAL PAIN SYNDROME
     Dosage: SEE IMAGE
     Route: 048
     Dates: start: 20041229, end: 20041229
  3. THALOMID [Suspect]
     Indication: COMPLEX REGIONAL PAIN SYNDROME
     Dosage: SEE IMAGE
     Route: 048
     Dates: start: 20041230
  4. OXYCONTIN [Concomitant]
  5. NEURONTIN [Concomitant]
  6. AMBIEN [Concomitant]
  7. ELAVIL [Concomitant]

REACTIONS (4)
  - DYSARTHRIA [None]
  - DYSPHAGIA [None]
  - GAIT DISTURBANCE [None]
  - OEDEMA PERIPHERAL [None]
